FAERS Safety Report 7959656-9 (Version None)
Quarter: 2011Q4

REPORT INFORMATION
  Report Type: 
  Country: None (occurrence: None)
  Receive Date: 20111201
  Receipt Date: 20111115
  Transmission Date: 20120403
  Serious: Yes (Death)
  Sender: FDA-Public Use
  Company Number: 2009-061

PATIENT
  Age: 55 Year
  Sex: Male

DRUGS (7)
  1. SERTRALINE HYDROCHLORIDE [Concomitant]
  2. SPIRIVA [Concomitant]
  3. ZYPREXA [Concomitant]
  4. ALBUTEROL [Concomitant]
  5. FAZACLO ODT [Suspect]
     Indication: SCHIZOPHRENIA, PARANOID TYPE
     Dosage: 400 MG, QD HS, ORAL
     Route: 048
     Dates: start: 20070725, end: 20090406
  6. ADVIAR (FLUTICASONE PROPIONATE, SALMETEROL XINAFOATE) [Concomitant]
  7. NICOTINE (NICOTINE) PATCH [Concomitant]

REACTIONS (7)
  - METASTASIS [None]
  - SCHIZOPHRENIA [None]
  - THROAT CANCER [None]
  - LUNG NEOPLASM MALIGNANT [None]
  - MENTAL DISORDER [None]
  - ABNORMAL BEHAVIOUR [None]
  - RESPIRATORY FAILURE [None]
